FAERS Safety Report 9329779 (Version 1)
Quarter: 2013Q2

REPORT INFORMATION
  Report Type: Spontaneous
  Country: US (occurrence: US)
  Receive Date: 20130604
  Receipt Date: 20130604
  Transmission Date: 20140414
  Serious: No
  Sender: FDA-Public Use
  Company Number: US-SANOFI-AVENTIS-2013SA002365

PATIENT
  Age: 51 Year
  Sex: Male
  Weight: 90.71 kg

DRUGS (3)
  1. LANTUS SOLOSTAR [Suspect]
     Dosage: DOSE:25 UNIT(S)
     Route: 051
     Dates: start: 201211
  2. SOLOSTAR [Suspect]
     Dosage: DOSE:25 UNIT(S)
     Dates: start: 201211
  3. NOVOLOG [Suspect]

REACTIONS (4)
  - Blood glucose increased [Unknown]
  - Gynaecomastia [Unknown]
  - Weight increased [Unknown]
  - Splenomegaly [Unknown]
